FAERS Safety Report 6836323-6 (Version None)
Quarter: 2010Q3

REPORT INFORMATION
  Report Type: 
  Country: None (occurrence: None)
  Receive Date: 20100713
  Receipt Date: 20100707
  Transmission Date: 20110219
  Serious: Yes (Other)
  Sender: FDA-Public Use
  Company Number: US-MERCK-0908USA01682

PATIENT
  Age: 65 Year
  Sex: Female
  Weight: 45 kg

DRUGS (1)
  1. FOSAMAX [Suspect]
     Indication: OSTEOPOROSIS
     Route: 048
     Dates: start: 20020101, end: 20070901

REACTIONS (14)
  - ABSCESS [None]
  - ACTINOMYCOSIS [None]
  - ADVERSE EVENT [None]
  - CATARACT [None]
  - CEREBRAL HAEMORRHAGE [None]
  - DENTAL CARIES [None]
  - EDENTULOUS [None]
  - EXOSTOSIS [None]
  - GINGIVAL BLEEDING [None]
  - GINGIVAL DISORDER [None]
  - IMPAIRED HEALING [None]
  - LYMPHADENOPATHY [None]
  - OSTEONECROSIS OF JAW [None]
  - TOOTH ABSCESS [None]
